FAERS Safety Report 7580071-4 (Version None)
Quarter: 2011Q2

REPORT INFORMATION
  Report Type: 
  Country: None (occurrence: None)
  Receive Date: 20110622
  Receipt Date: 20110606
  Transmission Date: 20111010
  Serious: Yes (Hospitalization)
  Sender: FDA-Public Use
  Company Number: LTI2011A00129

PATIENT
  Age: 58 Year
  Sex: Male

DRUGS (4)
  1. METFORMIN HCL [Concomitant]
  2. ACTOS [Suspect]
     Indication: TYPE 2 DIABETES MELLITUS
     Dosage: 30 MG (30 MG, 1 IN 1 D) ORAL
     Route: 048
     Dates: start: 20070323, end: 20091209
  3. COZAAR [Concomitant]
  4. CRESTOR [Concomitant]

REACTIONS (2)
  - CARCINOMA IN SITU [None]
  - TRANSITIONAL CELL CARCINOMA [None]
